FAERS Safety Report 13274897 (Version 9)
Quarter: 2020Q1

REPORT INFORMATION
  Report Type: Spontaneous
  Country: US (occurrence: US)
  Receive Date: 20170227
  Receipt Date: 20200310
  Transmission Date: 20200409
  Serious: No
  Sender: FDA-Public Use
  Company Number: US-ACTELION-A-US2017-150413

PATIENT
  Age: 78 Year
  Sex: Female
  Weight: 48.07 kg

DRUGS (4)
  1. TADALAFIL. [Concomitant]
     Active Substance: TADALAFIL
  2. ADCIRCA [Concomitant]
     Active Substance: TADALAFIL
  3. OPSUMIT [Suspect]
     Active Substance: MACITENTAN
     Indication: PULMONARY ARTERIAL HYPERTENSION
     Dosage: 10 MG, QD
     Route: 048
  4. OPSUMIT [Suspect]
     Active Substance: MACITENTAN
     Dosage: 10 MG, QD
     Route: 048

REACTIONS (12)
  - Dyspnoea [Unknown]
  - Lower respiratory tract infection [Unknown]
  - Dysphonia [Unknown]
  - Multiple allergies [Unknown]
  - Diarrhoea [Unknown]
  - Urinary tract infection [Unknown]
  - Pulmonary hypertension [Unknown]
  - Croup infectious [Unknown]
  - Cystitis [Unknown]
  - Fungal infection [Unknown]
  - Sinusitis [Unknown]
  - Blepharitis [Unknown]

NARRATIVE: CASE EVENT DATE: 20190529
